FAERS Safety Report 7776503-9 (Version None)
Quarter: 2011Q3

REPORT INFORMATION
  Report Type: 
  Country: None (occurrence: None)
  Receive Date: 20110926
  Receipt Date: 20110920
  Transmission Date: 20111222
  Serious: Yes (Other)
  Sender: FDA-Public Use
  Company Number: ZA-PFIZER INC-2011193418

PATIENT
  Age: 33 Year
  Sex: Female

DRUGS (2)
  1. SUTENT [Suspect]
     Indication: GASTROINTESTINAL STROMAL TUMOUR
     Dosage: 37.5 MG, 1X/DAY
     Route: 048
     Dates: start: 20110622, end: 20110819
  2. IMODIUM [Concomitant]
     Dosage: UNK
     Route: 048
     Dates: start: 20110720, end: 20110725

REACTIONS (1)
  - NEUTROPENIA [None]
